FAERS Safety Report 8182666-6 (Version None)
Quarter: 2012Q1

REPORT INFORMATION
  Report Type: 
  Country: None (occurrence: None)
  Receive Date: 20120305
  Receipt Date: 20120227
  Transmission Date: 20120608
  Serious: Yes (Other)
  Sender: FDA-Public Use
  Company Number: US-PFIZER INC-2012017353

PATIENT
  Sex: Female
  Weight: 63.492 kg

DRUGS (12)
  1. LYRICA [Suspect]
     Indication: NEUROPATHY PERIPHERAL
     Dosage: 75 MG, 2X/DAY
     Route: 048
     Dates: start: 20050101
  2. ESTRADIOL [Concomitant]
     Indication: MENOPAUSAL SYMPTOMS
     Dosage: UNK
  3. WELLBUTRIN XL [Concomitant]
     Indication: DEPRESSION
     Dosage: UNK
  4. WELLBUTRIN XL [Concomitant]
     Indication: ANXIETY
  5. NEURONTIN [Suspect]
     Indication: NEUROPATHY PERIPHERAL
     Dosage: UNK
     Dates: start: 20040101, end: 20050101
  6. NEURONTIN [Suspect]
     Indication: FIBROMYALGIA
  7. LIPITOR [Concomitant]
     Indication: BLOOD CHOLESTEROL ABNORMAL
     Dosage: UNK
  8. AMBIEN [Concomitant]
     Dosage: UNK
  9. SINGULAIR [Concomitant]
     Indication: ASTHMA
     Dosage: UNK
  10. LYRICA [Suspect]
     Indication: FIBROMYALGIA
  11. ACETYLSALICYLIC ACID [Concomitant]
     Dosage: UNK, DAILY
  12. OXYTOCIN [Concomitant]
     Dosage: UNK

REACTIONS (3)
  - HYPERSENSITIVITY [None]
  - DRUG INEFFECTIVE [None]
  - NEUROPATHY PERIPHERAL [None]
